FAERS Safety Report 6275114-4 (Version None)
Quarter: 2009Q3

REPORT INFORMATION
  Report Type: 
  Country: None (occurrence: None)
  Receive Date: 20090721
  Receipt Date: 20090717
  Transmission Date: 20100115
  Serious: Yes (Hospitalization, Other)
  Sender: FDA-Public Use
  Company Number: PHHY2008JP16014

PATIENT
  Sex: Female
  Weight: 48 kg

DRUGS (4)
  1. GLEEVEC [Suspect]
     Indication: CHRONIC MYELOID LEUKAEMIA
     Dosage: 400 MG/DAY
     Route: 048
     Dates: start: 20071004, end: 20080708
  2. GLEEVEC [Suspect]
     Dosage: 200-300 MG/DAY
     Route: 048
  3. ALDACTONE [Suspect]
     Indication: OEDEMA
     Dosage: 50 MG/DAY
     Route: 048
     Dates: start: 20070708, end: 20080709
  4. ZANTAC [Suspect]
     Indication: GASTRIC ULCER HAEMORRHAGE
     Dosage: 75 MG/DAY
     Route: 048
     Dates: start: 20070130, end: 20080708

REACTIONS (3)
  - COUGH [None]
  - INTERSTITIAL LUNG DISEASE [None]
  - VIRAL INFECTION [None]
